FAERS Safety Report 8778089 (Version 1)
Quarter: 2012Q4

REPORT INFORMATION
  Report Type: 
  Country: US (occurrence: US)
  Receive Date: 20120912
  Receipt Date: 20120912
  Transmission Date: 20130627
  Serious: Yes (Hospitalization, Other)
  Sender: FDA-Public Use
  Company Number: US-ELI_LILLY_AND_COMPANY-US201209001079

PATIENT
  Sex: Male

DRUGS (4)
  1. AXIRON [Suspect]
     Indication: BLOOD TESTOSTERONE DECREASED
     Dosage: 60 mg, qd
  2. HYDROMORPHONE [Concomitant]
  3. CLONIDINE [Concomitant]
  4. BUPIVACAINE [Concomitant]

REACTIONS (10)
  - Sepsis [Unknown]
  - Pneumonia [Unknown]
  - Blood pressure increased [Recovered/Resolved]
  - Muscle twitching [Unknown]
  - Hypopnoea [Unknown]
  - Heart rate increased [Recovered/Resolved]
  - Body temperature increased [Unknown]
  - Alopecia [Unknown]
  - Blood pressure decreased [Recovered/Resolved]
  - Heart rate decreased [Recovered/Resolved]
